FAERS Safety Report 20128792 (Version 17)
Quarter: 2023Q1

REPORT INFORMATION
  Report Type: Report from Study
  Country: CN (occurrence: None)
  Receive Date: 20211130
  Receipt Date: 20230306
  Transmission Date: 20230418
  Serious: Yes (Hospitalization)
  Sender: FDA-Public Use
  Company Number: CN-ROCHE-2969118

PATIENT
  Age: 60 Year
  Sex: Female
  Weight: 64 kg

DRUGS (105)
  1. PLACEBO [Suspect]
     Active Substance: UNSPECIFIED INGREDIENT
     Indication: Lung adenocarcinoma
     Dosage: START DATE OF MOST RECENT DOSE OF STUDY DRUG PRIOR TO SAE: 11/NOV/2021?START DATE OF MOST RECENT DOS
     Route: 042
     Dates: start: 20210824
  2. BEVACIZUMAB [Suspect]
     Active Substance: BEVACIZUMAB
     Indication: Lung adenocarcinoma
     Dosage: ON 11/NOV/2021 MOST RECENT DOSE OF STUDY DRUG PRIOR TO AE
     Route: 042
     Dates: start: 20210824
  3. CARBOPLATIN [Suspect]
     Active Substance: CARBOPLATIN
     Indication: Lung adenocarcinoma
     Dosage: ON 12/NOV/2021MOST RECENT DOSE OF STUDY DRUG 400 MG PRIOR TO AE
     Route: 042
     Dates: start: 20210825
  4. PEMETREXED [Suspect]
     Active Substance: PEMETREXED
     Indication: Lung adenocarcinoma
     Dosage: ON 12/NOV/2021MOST RECENT DOSE OF STUDY DRUG 805 MG PRIOR TO AE
     Route: 042
     Dates: start: 20210825
  5. COMPOUND RESERPINE [Concomitant]
     Indication: Hypertension
     Dates: start: 2021
  6. COMPOUND RESERPINE [Concomitant]
     Dates: start: 2011
  7. FLUNARIZINE HYDROCHLORIDE [Concomitant]
     Active Substance: FLUNARIZINE HYDROCHLORIDE
     Indication: Headache
     Dates: start: 2021
  8. ASPIRIN [Concomitant]
     Active Substance: ASPIRIN
     Route: 048
     Dates: start: 2021
  9. METFORMIN HYDROCHLORIDE [Concomitant]
     Active Substance: METFORMIN HYDROCHLORIDE
     Dates: start: 2019
  10. PALONOSETRON HYDROCHLORIDE [Concomitant]
     Active Substance: PALONOSETRON HYDROCHLORIDE
     Dates: start: 20210825, end: 20210825
  11. PALONOSETRON HYDROCHLORIDE [Concomitant]
     Active Substance: PALONOSETRON HYDROCHLORIDE
     Dates: start: 20211009, end: 20211009
  12. PALONOSETRON HYDROCHLORIDE [Concomitant]
     Active Substance: PALONOSETRON HYDROCHLORIDE
     Dates: start: 20211112, end: 20211112
  13. PALONOSETRON HYDROCHLORIDE [Concomitant]
     Active Substance: PALONOSETRON HYDROCHLORIDE
     Dates: start: 20211223, end: 20211223
  14. DEXAMETHASONE ACETATE [Concomitant]
     Active Substance: DEXAMETHASONE ACETATE
     Route: 048
     Dates: start: 20210825, end: 20210825
  15. DEXAMETHASONE ACETATE [Concomitant]
     Active Substance: DEXAMETHASONE ACETATE
     Route: 048
     Dates: start: 20210916, end: 20210918
  16. DEXAMETHASONE ACETATE [Concomitant]
     Active Substance: DEXAMETHASONE ACETATE
     Route: 048
     Dates: start: 20211008, end: 20211011
  17. DEXAMETHASONE ACETATE [Concomitant]
     Active Substance: DEXAMETHASONE ACETATE
     Route: 048
     Dates: start: 20211111, end: 20211113
  18. DEXAMETHASONE ACETATE [Concomitant]
     Active Substance: DEXAMETHASONE ACETATE
     Route: 048
     Dates: start: 20211222, end: 20211224
  19. APREPITANT [Concomitant]
     Active Substance: APREPITANT
     Indication: Prophylaxis of nausea and vomiting
     Route: 048
     Dates: start: 20210824, end: 20210826
  20. APREPITANT [Concomitant]
     Active Substance: APREPITANT
     Indication: Prophylaxis of nausea and vomiting
     Route: 048
     Dates: start: 20211009, end: 20211011
  21. APREPITANT [Concomitant]
     Active Substance: APREPITANT
     Route: 048
     Dates: start: 20211112, end: 20211115
  22. INSULIN NOS [Concomitant]
     Active Substance: INSULIN NOS
     Dates: start: 20210825, end: 20210825
  23. ONDANSETRON HYDROCHLORIDE [Concomitant]
     Active Substance: ONDANSETRON HYDROCHLORIDE
     Indication: Nausea
     Dates: start: 20210828, end: 20210830
  24. ONDANSETRON HYDROCHLORIDE [Concomitant]
     Active Substance: ONDANSETRON HYDROCHLORIDE
     Dates: start: 20211203, end: 20211209
  25. ONDANSETRON HYDROCHLORIDE [Concomitant]
     Active Substance: ONDANSETRON HYDROCHLORIDE
     Dates: start: 20210917, end: 20211008
  26. MOLGRAMOSTIM [Concomitant]
     Active Substance: MOLGRAMOSTIM
     Indication: White blood cell count decreased
     Dates: start: 20210808, end: 20210810
  27. MOLGRAMOSTIM [Concomitant]
     Active Substance: MOLGRAMOSTIM
     Indication: Neutrophil count decreased
     Dates: start: 20210911, end: 20210912
  28. MOLGRAMOSTIM [Concomitant]
     Active Substance: MOLGRAMOSTIM
     Dates: start: 20211124, end: 20211125
  29. MOLGRAMOSTIM [Concomitant]
     Active Substance: MOLGRAMOSTIM
     Dates: start: 20211129, end: 20211129
  30. MOLGRAMOSTIM [Concomitant]
     Active Substance: MOLGRAMOSTIM
     Dates: start: 20211214, end: 20211214
  31. MOLGRAMOSTIM [Concomitant]
     Active Substance: MOLGRAMOSTIM
     Dates: start: 20220102, end: 20220104
  32. MOLGRAMOSTIM [Concomitant]
     Active Substance: MOLGRAMOSTIM
     Dates: start: 20210928, end: 20210929
  33. MOLGRAMOSTIM [Concomitant]
     Active Substance: MOLGRAMOSTIM
     Dates: start: 20211106, end: 20211107
  34. ALBUMIN HUMAN [Concomitant]
     Active Substance: ALBUMIN HUMAN
     Indication: Hypoproteinaemia
     Dates: start: 20210915, end: 20210918
  35. ALBUMIN HUMAN [Concomitant]
     Active Substance: ALBUMIN HUMAN
     Dates: start: 20211210, end: 20211211
  36. ALBUMIN HUMAN [Concomitant]
     Active Substance: ALBUMIN HUMAN
     Dates: start: 20211213, end: 20211221
  37. GEFITINIB [Concomitant]
     Active Substance: GEFITINIB
     Dates: start: 20200807, end: 20210812
  38. VITAMIN B6 [Concomitant]
     Active Substance: PYRIDOXINE HYDROCHLORIDE
     Dates: start: 20210825, end: 20210826
  39. VITAMIN B6 [Concomitant]
     Active Substance: PYRIDOXINE HYDROCHLORIDE
     Dates: start: 20211009, end: 20211009
  40. VITAMIN B6 [Concomitant]
     Active Substance: PYRIDOXINE HYDROCHLORIDE
     Dates: start: 20211112, end: 20211114
  41. VITAMIN B6 [Concomitant]
     Active Substance: PYRIDOXINE HYDROCHLORIDE
     Dates: start: 20211126, end: 20211212
  42. VITAMIN B6 [Concomitant]
     Active Substance: PYRIDOXINE HYDROCHLORIDE
     Dates: start: 20211221, end: 20211224
  43. VITAMIN B6 [Concomitant]
     Active Substance: PYRIDOXINE HYDROCHLORIDE
     Dates: start: 20210917, end: 20210918
  44. HYDROTALCITE [Concomitant]
     Active Substance: HYDROTALCITE
     Route: 048
     Dates: start: 20210916, end: 20210916
  45. HYDROTALCITE [Concomitant]
     Active Substance: HYDROTALCITE
     Dates: start: 20210918, end: 20211008
  46. OMEPRAZOLE [Concomitant]
     Active Substance: OMEPRAZOLE
     Route: 048
     Dates: start: 20210915, end: 20210918
  47. OMEPRAZOLE [Concomitant]
     Active Substance: OMEPRAZOLE
     Route: 048
     Dates: start: 20210824, end: 20210826
  48. OMEPRAZOLE [Concomitant]
     Active Substance: OMEPRAZOLE
     Dates: start: 20211008, end: 20211011
  49. OMEPRAZOLE [Concomitant]
     Active Substance: OMEPRAZOLE
     Dates: start: 20211011, end: 20211030
  50. OMEPRAZOLE [Concomitant]
     Active Substance: OMEPRAZOLE
     Dates: start: 20211111, end: 20211115
  51. BROMHEXINE HYDROCHLORIDE [Concomitant]
     Active Substance: BROMHEXINE HYDROCHLORIDE
     Dates: start: 20210915, end: 20210918
  52. BROMHEXINE HYDROCHLORIDE [Concomitant]
     Active Substance: BROMHEXINE HYDROCHLORIDE
     Dates: start: 20211008, end: 20211011
  53. BROMHEXINE HYDROCHLORIDE [Concomitant]
     Active Substance: BROMHEXINE HYDROCHLORIDE
     Dates: start: 20211111, end: 20211115
  54. AMBROXOL HYDROCHLORIDE [Concomitant]
     Active Substance: AMBROXOL HYDROCHLORIDE
     Dates: start: 20210915, end: 20210918
  55. AMBROXOL HYDROCHLORIDE [Concomitant]
     Active Substance: AMBROXOL HYDROCHLORIDE
     Dates: start: 20211008, end: 20211011
  56. AMBROXOL HYDROCHLORIDE [Concomitant]
     Active Substance: AMBROXOL HYDROCHLORIDE
     Dates: start: 20211111, end: 20211115
  57. LACTULOSE [Concomitant]
     Active Substance: LACTULOSE
     Route: 048
     Dates: start: 20210928, end: 20210929
  58. LACTULOSE [Concomitant]
     Active Substance: LACTULOSE
     Route: 048
     Dates: start: 20211120, end: 20211213
  59. OPRELVEKIN [Concomitant]
     Active Substance: OPRELVEKIN
     Indication: Platelet count decreased
     Dates: start: 20210928, end: 20210929
  60. OPRELVEKIN [Concomitant]
     Active Substance: OPRELVEKIN
     Dates: start: 20211003, end: 20211005
  61. CLIVARIN [Concomitant]
     Dates: start: 20210919, end: 20210922
  62. CLIVARIN [Concomitant]
     Dates: start: 20210924, end: 20210924
  63. CLIVARIN [Concomitant]
     Dates: start: 20210926, end: 20210930
  64. CLIVARIN [Concomitant]
     Dates: start: 20211009, end: 20211011
  65. CLIVARIN [Concomitant]
     Dates: start: 20210916, end: 20210918
  66. CLIVARIN [Concomitant]
     Dates: start: 20211214, end: 20211224
  67. DOXOFYLLINE [Concomitant]
     Active Substance: DOXOFYLLINE
     Dates: start: 20211008, end: 20211011
  68. DOXOFYLLINE [Concomitant]
     Active Substance: DOXOFYLLINE
     Dates: start: 20211111, end: 20211115
  69. DOXOFYLLINE [Concomitant]
     Active Substance: DOXOFYLLINE
     Dates: start: 20210915, end: 20210918
  70. ALBUMIN HUMAN [Concomitant]
     Active Substance: ALBUMIN HUMAN
     Indication: Hypoalbuminaemia
     Dates: start: 20211009, end: 20211011
  71. ALBUMIN HUMAN [Concomitant]
     Active Substance: ALBUMIN HUMAN
     Dates: start: 20211213, end: 20211221
  72. CODEINE PHOSPHATE [Concomitant]
     Active Substance: CODEINE PHOSPHATE
     Dates: start: 20211011, end: 20211015
  73. CODEINE PHOSPHATE [Concomitant]
     Active Substance: CODEINE PHOSPHATE
     Route: 048
     Dates: start: 20211120, end: 20211212
  74. FUROSEMIDE [Concomitant]
     Active Substance: FUROSEMIDE
     Indication: Polyuria
     Dates: start: 20211111, end: 20211111
  75. FUROSEMIDE [Concomitant]
     Active Substance: FUROSEMIDE
     Dates: start: 20211204, end: 20211212
  76. FUROSEMIDE [Concomitant]
     Active Substance: FUROSEMIDE
     Dates: start: 20211213, end: 20211221
  77. OMEPRAZOLE [Concomitant]
     Active Substance: OMEPRAZOLE
     Dates: start: 20211011, end: 20211030
  78. OMEPRAZOLE [Concomitant]
     Active Substance: OMEPRAZOLE
     Dates: start: 20211111, end: 20211118
  79. LEUCOGEN TABLETS [Concomitant]
     Route: 048
     Dates: start: 20211111, end: 20211120
  80. LEUCOGEN TABLETS [Concomitant]
     Route: 048
     Dates: start: 20211121, end: 20211126
  81. CANDESARTAN CILEXETIL [Concomitant]
     Active Substance: CANDESARTAN CILEXETIL
     Indication: Hypertension
     Route: 048
     Dates: start: 20211126, end: 20211212
  82. METOPROLOL TARTRATE [Concomitant]
     Active Substance: METOPROLOL TARTRATE
     Indication: Hypertension
     Route: 048
     Dates: start: 20211126, end: 20211212
  83. VITAMIN C [Concomitant]
     Active Substance: ASCORBIC ACID
     Dates: start: 20211126, end: 20211212
  84. POTASSIUM CHLORIDE [Concomitant]
     Active Substance: POTASSIUM CHLORIDE
     Dates: start: 20211126, end: 20211209
  85. POTASSIUM CHLORIDE [Concomitant]
     Active Substance: POTASSIUM CHLORIDE
     Dates: start: 20211221, end: 20211224
  86. POTASSIUM CHLORIDE [Concomitant]
     Active Substance: POTASSIUM CHLORIDE
     Dates: start: 20211221, end: 20211224
  87. POTASSIUM CHLORIDE [Concomitant]
     Active Substance: POTASSIUM CHLORIDE
     Dates: start: 20211225, end: 20220110
  88. DOMPERIDONE [Concomitant]
     Active Substance: DOMPERIDONE
     Route: 048
     Dates: start: 20211126, end: 20211212
  89. FAMOTIDINE [Concomitant]
     Active Substance: FAMOTIDINE
     Dates: start: 20211206, end: 20211212
  90. AMINO ACIDS, SOURCE UNSPECIFIED [Concomitant]
     Active Substance: AMINO ACIDS, SOURCE UNSPECIFIED
     Dates: start: 20211213, end: 20211224
  91. INOSINE [Concomitant]
     Active Substance: INOSINE
     Dates: start: 20211213, end: 20211221
  92. CLIVARIN [Concomitant]
     Dates: start: 20211214, end: 20211224
  93. OSIMERTINIB MESYLATE [Concomitant]
     Active Substance: OSIMERTINIB MESYLATE
     Route: 048
     Dates: start: 2022
  94. OMEPRAZOLE [Concomitant]
     Active Substance: OMEPRAZOLE
     Dates: start: 20210919, end: 20210921
  95. ERYTHROPOIETIN [Concomitant]
     Active Substance: ERYTHROPOIETIN
     Dates: start: 20210915, end: 20210918
  96. ERYTHROPOIETIN [Concomitant]
     Active Substance: ERYTHROPOIETIN
     Dates: start: 20210919, end: 20210924
  97. ERYTHROPOIETIN [Concomitant]
     Active Substance: ERYTHROPOIETIN
     Dates: start: 20210926, end: 20210926
  98. ERYTHROPOIETIN [Concomitant]
     Active Substance: ERYTHROPOIETIN
     Dates: start: 20210930, end: 20211002
  99. ERYTHROPOIETIN [Concomitant]
     Active Substance: ERYTHROPOIETIN
     Dates: start: 20211008, end: 20211011
  100. ERYTHROPOIETIN [Concomitant]
     Active Substance: ERYTHROPOIETIN
     Dates: start: 20211017, end: 20211022
  101. ERYTHROPOIETIN [Concomitant]
     Active Substance: ERYTHROPOIETIN
     Dates: start: 20211026, end: 20211029
  102. ERYTHROPOIETIN [Concomitant]
     Active Substance: ERYTHROPOIETIN
     Dates: start: 20211031, end: 20211109
  103. ERYTHROPOIETIN [Concomitant]
     Active Substance: ERYTHROPOIETIN
     Dates: start: 20211112, end: 20211115
  104. ERYTHROPOIETIN [Concomitant]
     Active Substance: ERYTHROPOIETIN
     Dates: start: 20211202, end: 20211212
  105. METOCLOPRAMIDE HYDROCHLORIDE [Concomitant]
     Active Substance: METOCLOPRAMIDE HYDROCHLORIDE
     Dates: start: 20210916, end: 20210918

REACTIONS (2)
  - Platelet count decreased [Recovered/Resolved]
  - Anaemia [Recovered/Resolved]

NARRATIVE: CASE EVENT DATE: 20210905
